FAERS Safety Report 8002475-8 (Version None)
Quarter: 2011Q4

REPORT INFORMATION
  Report Type: 
  Country: None (occurrence: None)
  Receive Date: 20111222
  Receipt Date: 20111214
  Transmission Date: 20120403
  Serious: Yes (Other)
  Sender: FDA-Public Use
  Company Number: JP-JNJFOC-20110607476

PATIENT
  Sex: Male
  Weight: 54 kg

DRUGS (5)
  1. OXAROL [Concomitant]
     Indication: PSORIASIS
     Route: 061
     Dates: start: 20110414
  2. REMICADE [Suspect]
     Indication: PSORIASIS
     Route: 042
     Dates: start: 20110303
  3. REMICADE [Suspect]
     Route: 042
     Dates: start: 20110317
  4. CLOBETASOL PROPIONATE [Concomitant]
     Indication: PSORIASIS
     Route: 061
     Dates: start: 20110414
  5. REMICADE [Suspect]
     Dosage: PATIENT'S THIRD DOSE (3 DOSES TOTAL)
     Route: 042
     Dates: start: 20110414, end: 20110609

REACTIONS (6)
  - NEUROPATHY PERIPHERAL [None]
  - COUGH [None]
  - MUSCULOSKELETAL PAIN [None]
  - MUSCULAR WEAKNESS [None]
  - MALAISE [None]
  - PYREXIA [None]
